FAERS Safety Report 6303095-3 (Version None)
Quarter: 2009Q3

REPORT INFORMATION
  Report Type: 
  Country: None (occurrence: None)
  Receive Date: 20090810
  Receipt Date: 20090726
  Transmission Date: 20100115
  Serious: Yes (Other)
  Sender: FDA-Public Use
  Company Number: GB-ROCHE-647637

PATIENT
  Age: 41 Year
  Sex: Female

DRUGS (1)
  1. TAMIFLU [Suspect]
     Route: 065

REACTIONS (6)
  - DECREASED APPETITE [None]
  - DISORIENTATION [None]
  - MALAISE [None]
  - MENTAL IMPAIRMENT [None]
  - NIGHT SWEATS [None]
  - NIGHTMARE [None]
